FAERS Safety Report 6137763-3 (Version None)
Quarter: 2009Q1

REPORT INFORMATION
  Report Type: 
  Country: None (occurrence: None)
  Receive Date: 20090331
  Receipt Date: 20090323
  Transmission Date: 20090719
  Serious: Yes (Hospitalization)
  Sender: FDA-Public Use
  Company Number: US-ASTRAZENECA-2009UW07364

PATIENT
  Age: 46 Year
  Sex: Female

DRUGS (3)
  1. ARIMIDEX [Suspect]
     Indication: BREAST CANCER
     Route: 048
  2. CYMBALTA [Concomitant]
  3. NORTRIPTYLINE HCL [Concomitant]

REACTIONS (3)
  - DEPRESSION [None]
  - MENTAL STATUS CHANGES [None]
  - SUICIDAL IDEATION [None]
